FAERS Safety Report 15709221 (Version 3)
Quarter: 2019Q1

REPORT INFORMATION
  Report Type: Spontaneous
  Country: US (occurrence: US)
  Receive Date: 20181211
  Receipt Date: 20190314
  Transmission Date: 20190417
  Serious: Yes (Hospitalization, Other)
  Sender: FDA-Public Use
  Company Number: US-BRISTOL-MYERS SQUIBB COMPANY-BMS-2018-116320

PATIENT
  Age: 69 Year
  Sex: Female
  Weight: 58.9 kg

DRUGS (1)
  1. ORENCIA [Suspect]
     Active Substance: ABATACEPT
     Indication: RHEUMATOID ARTHRITIS
     Dosage: 125 MG, QWK
     Route: 058
     Dates: start: 201806

REACTIONS (5)
  - Chest pain [Unknown]
  - Inflammation [Unknown]
  - Product dose omission [Unknown]
  - Cerebrovascular accident [Unknown]
  - Kidney infection [Unknown]

NARRATIVE: CASE EVENT DATE: 20190225
